FAERS Safety Report 6635736-5 (Version None)
Quarter: 2010Q1

REPORT INFORMATION
  Report Type: 
  Country: None (occurrence: None)
  Receive Date: 20100309
  Receipt Date: 20100226
  Transmission Date: 20100710
  Serious: Yes (Other)
  Sender: FDA-Public Use
  Company Number: WAES 1003USA00521

PATIENT
  Age: 60 Year
  Sex: Male

DRUGS (1)
  1. PEPCID [Suspect]
     Dosage: PO
     Route: 048

REACTIONS (2)
  - BREAST CANCER MALE [None]
  - GYNAECOMASTIA [None]
